FAERS Safety Report 12220066 (Version 2)
Quarter: 2016Q2

REPORT INFORMATION
  Report Type: Spontaneous
  Country: US (occurrence: US)
  Receive Date: 20160330
  Receipt Date: 20160518
  Transmission Date: 20160815
  Serious: Yes (Life-Threatening, Other)
  Sender: FDA-Public Use
  Company Number: US-ASTRAZENECA-2016SE31895

PATIENT
  Age: 19276 Day
  Sex: Female
  Weight: 108 kg

DRUGS (6)
  1. PEPCID [Concomitant]
     Active Substance: FAMOTIDINE
     Route: 048
  2. ANGIOMAX [Concomitant]
     Active Substance: BIVALIRUDIN
  3. NORVASC [Concomitant]
     Active Substance: AMLODIPINE BESYLATE
     Route: 048
  4. BRILINTA [Suspect]
     Active Substance: TICAGRELOR
     Indication: ACUTE CORONARY SYNDROME
     Route: 048
     Dates: start: 20160321, end: 20160321
  5. BRILINTA [Suspect]
     Active Substance: TICAGRELOR
     Indication: ACUTE MYOCARDIAL INFARCTION
     Route: 048
     Dates: start: 20160321, end: 20160321
  6. WELLBUTRIN [Concomitant]
     Active Substance: BUPROPION HYDROCHLORIDE
     Route: 048

REACTIONS (1)
  - Vascular stent thrombosis [Recovered/Resolved]

NARRATIVE: CASE EVENT DATE: 20160321
